FAERS Safety Report 8065403-5 (Version None)
Quarter: 2012Q1

REPORT INFORMATION
  Report Type: 
  Country: None (occurrence: None)
  Receive Date: 20120124
  Receipt Date: 20111013
  Transmission Date: 20120608
  Serious: Yes (Hospitalization, Other)
  Sender: FDA-Public Use
  Company Number: US-ELI_LILLY_AND_COMPANY-US201109001951

PATIENT
  Age: 82 Year
  Sex: Female

DRUGS (9)
  1. PANTOPRAZOLE [Concomitant]
  2. ATENOLOL [Concomitant]
  3. CADUET [Concomitant]
  4. TOVIAZ [Concomitant]
  5. AVAPRO [Concomitant]
  6. FORTEO [Suspect]
     Dosage: UNK UNK, UNKNOWN
     Route: 065
  7. ISORBIDE [Concomitant]
  8. CELEBREX [Concomitant]
  9. EYE DROPS [Concomitant]

REACTIONS (1)
  - NO ADVERSE EVENT [None]
